FAERS Safety Report 5554971-0 (Version None)
Quarter: 2007Q4

REPORT INFORMATION
  Report Type: 
  Country: None (occurrence: None)
  Receive Date: 20071213
  Receipt Date: 20071212
  Transmission Date: 20080405
  Serious: Yes (Disabling)
  Sender: FDA-Public Use
  Company Number: FR-JNJFOC-20071202946

PATIENT
  Sex: Female

DRUGS (5)
  1. RISPERDALORO [Suspect]
     Indication: HALLUCINATION
     Route: 048
     Dates: start: 20070724, end: 20070725
  2. RIVOTRIL [Suspect]
     Indication: ANXIETY
     Route: 048
     Dates: start: 20070716, end: 20070728
  3. ENALAPRIL MALEATE [Suspect]
     Indication: HYPERTENSION
     Route: 048
     Dates: start: 20070715, end: 20070726
  4. LEXOMIL [Suspect]
     Indication: ANXIETY
     Route: 048
     Dates: start: 20070723, end: 20070728
  5. SOLIAN [Suspect]
     Indication: HALLUCINATION
     Route: 048
     Dates: start: 20070725, end: 20070727

REACTIONS (5)
  - ABNORMAL BEHAVIOUR [None]
  - CHEST PAIN [None]
  - FALL [None]
  - FEMUR FRACTURE [None]
  - HYPERTENSION [None]
